FAERS Safety Report 6663230-4 (Version None)
Quarter: 2010Q2

REPORT INFORMATION
  Report Type: 
  Country: None (occurrence: None)
  Receive Date: 20100401
  Receipt Date: 20100326
  Transmission Date: 20101027
  Serious: Yes (Death, Hospitalization)
  Sender: FDA-Public Use
  Company Number: PHHY2010CA02325

PATIENT
  Sex: Male

DRUGS (18)
  1. CLOZARIL [Suspect]
     Indication: SCHIZOPHRENIA
     Dosage: 650 MG, QHS
     Route: 048
     Dates: start: 20050314, end: 20091216
  2. CELEXA [Concomitant]
     Dosage: 40 MG, QD
     Route: 048
  3. PANTOPRAZOLE [Concomitant]
     Dosage: 40 MG, QD
     Route: 048
  4. EPIVAL [Concomitant]
  5. METOPROLOL [Concomitant]
     Dosage: 25, BID
  6. ASPIRIN [Concomitant]
     Dosage: 80, QD
  7. COLACE [Concomitant]
     Dosage: 100, BID
  8. GLYBURIDE [Concomitant]
     Dosage: 1.25 BID
  9. METFORMIN (GLUCOPHAGE) [Concomitant]
     Dosage: 840, BID
  10. SYNTHROID [Concomitant]
     Dosage: 0.15 QD
  11. CRESTOR [Concomitant]
     Dosage: 5 MG, QD
  12. VANCOMYCIN [Concomitant]
  13. MIDAZOLAM HCL [Concomitant]
  14. FENTANYL-25 [Concomitant]
  15. ATIVAN [Concomitant]
  16. TICARCILLIN/CLAVULANATE POTASSIUM [Concomitant]
  17. FUROSEMIDE [Concomitant]
  18. ROCURONIUM BROMIDE [Concomitant]

REACTIONS (2)
  - AORTIC VALVE REPLACEMENT [None]
  - CARDIAC OUTPUT DECREASED [None]
